FAERS Safety Report 20514161 (Version 1)
Quarter: 2022Q1

REPORT INFORMATION
  Report Type: Spontaneous
  Country: US (occurrence: None)
  Receive Date: 20220224
  Receipt Date: 20220224
  Transmission Date: 20220423
  Serious: Yes (Other)
  Sender: FDA-Public Use
  Company Number: 2022A072551

PATIENT
  Age: 19594 Day
  Sex: Male
  Weight: 94.8 kg

DRUGS (2)
  1. EVUSHELD [Suspect]
     Active Substance: CILGAVIMAB\TIXAGEVIMAB
     Indication: Prophylaxis
     Route: 030
     Dates: start: 20220208, end: 20220208
  2. EVUSHELD [Suspect]
     Active Substance: CILGAVIMAB\TIXAGEVIMAB
     Indication: COVID-19
     Route: 030
     Dates: start: 20220208, end: 20220208

REACTIONS (4)
  - Arthritis [Not Recovered/Not Resolved]
  - Rash [Not Recovered/Not Resolved]
  - Swelling [Not Recovered/Not Resolved]
  - Pain [Not Recovered/Not Resolved]

NARRATIVE: CASE EVENT DATE: 20220209
